FAERS Safety Report 13345771 (Version 5)
Quarter: 2018Q3

REPORT INFORMATION
  Report Type: Report from Study
  Country: JP (occurrence: JP)
  Receive Date: 20170317
  Receipt Date: 20180828
  Transmission Date: 20181010
  Serious: Yes (Hospitalization)
  Sender: FDA-Public Use
  Company Number: JP-JNJFOC-20170314138

PATIENT
  Age: 43 Year
  Sex: Female
  Weight: 48 kg

DRUGS (43)
  1. REMICADE [Suspect]
     Active Substance: INFLIXIMAB
     Indication: BEHCET^S SYNDROME
     Route: 042
     Dates: start: 20170703
  2. COLCHICINE. [Concomitant]
     Active Substance: COLCHICINE
     Indication: BEHCET^S SYNDROME
     Route: 048
  3. DESYREL [Concomitant]
     Active Substance: TRAZODONE HYDROCHLORIDE
     Indication: DEPRESSION
     Route: 048
  4. DERMOVATE [Concomitant]
     Active Substance: CLOBETASOL
     Indication: BEHCET^S SYNDROME
     Route: 061
     Dates: start: 20170703, end: 20171017
  5. COBALT [Suspect]
     Active Substance: COBALT
     Indication: PRODUCT USED FOR UNKNOWN INDICATION
     Route: 065
  6. BROTIZOLAM [Concomitant]
     Active Substance: BROTIZOLAM
     Indication: DEPRESSION
     Route: 048
     Dates: start: 20160420
  7. PAXIL [Concomitant]
     Active Substance: PAROXETINE HYDROCHLORIDE
     Indication: DEPRESSION
     Route: 048
  8. REMICADE [Suspect]
     Active Substance: INFLIXIMAB
     Indication: BEHCET^S SYNDROME
     Route: 042
     Dates: start: 20160421
  9. REMICADE [Suspect]
     Active Substance: INFLIXIMAB
     Indication: BEHCET^S SYNDROME
     Route: 042
     Dates: start: 20161202
  10. HEPARINOID [Suspect]
     Active Substance: CHONDROITIN SULFATE (BOVINE)
     Indication: PRODUCT USED FOR UNKNOWN INDICATION
     Route: 051
     Dates: start: 20161031, end: 20161104
  11. HEPARINOID [Suspect]
     Active Substance: CHONDROITIN SULFATE (BOVINE)
     Indication: ERYTHEMA
     Route: 061
     Dates: start: 20161102, end: 20161104
  12. NICKEL [Suspect]
     Active Substance: NICKEL
     Indication: PRODUCT USED FOR UNKNOWN INDICATION
     Route: 065
  13. PREDONINE [Suspect]
     Active Substance: PREDNISOLONE
     Indication: BEHCET^S SYNDROME
     Route: 048
  14. SYMBICORT [Concomitant]
     Active Substance: BUDESONIDE\FORMOTEROL FUMARATE DIHYDRATE
     Indication: ASTHMA
     Route: 055
     Dates: start: 20170313
  15. BAKTAR [Concomitant]
     Active Substance: SULFAMETHOXAZOLE\TRIMETHOPRIM
     Indication: PROPHYLAXIS
     Route: 048
  16. REMICADE [Suspect]
     Active Substance: INFLIXIMAB
     Indication: BEHCET^S SYNDROME
     Route: 042
     Dates: start: 20160616
  17. REMICADE [Suspect]
     Active Substance: INFLIXIMAB
     Indication: BEHCET^S SYNDROME
     Route: 042
     Dates: start: 20160908
  18. WARFARIN [Concomitant]
     Active Substance: WARFARIN
     Indication: BEHCET^S SYNDROME
     Route: 048
     Dates: start: 20170901
  19. NEXIUM [Concomitant]
     Active Substance: ESOMEPRAZOLE MAGNESIUM
     Indication: PROPHYLAXIS
     Route: 048
  20. REMICADE [Suspect]
     Active Substance: INFLIXIMAB
     Indication: BEHCET^S SYNDROME
     Route: 042
     Dates: start: 20160302
  21. HEPARINOID [Suspect]
     Active Substance: CHONDROITIN SULFATE (BOVINE)
     Indication: RASH
     Route: 061
     Dates: start: 20161102, end: 20161104
  22. WARFARIN [Concomitant]
     Active Substance: WARFARIN
     Indication: BEHCET^S SYNDROME
     Route: 048
  23. ETIZOLAM [Concomitant]
     Active Substance: ETIZOLAM
     Indication: DEPRESSION
     Route: 048
     Dates: end: 20160420
  24. BETAMETHASONE. [Concomitant]
     Active Substance: BETAMETHASONE
     Indication: BEHCET^S SYNDROME
     Route: 048
     Dates: start: 20170731, end: 20170816
  25. REMICADE [Suspect]
     Active Substance: INFLIXIMAB
     Indication: BEHCET^S SYNDROME
     Route: 042
     Dates: start: 20170123
  26. REMICADE [Suspect]
     Active Substance: INFLIXIMAB
     Indication: BEHCET^S SYNDROME
     Route: 042
     Dates: start: 20170313, end: 20170508
  27. DEPAS [Concomitant]
     Active Substance: ETIZOLAM
     Indication: DEPRESSION
     Route: 048
     Dates: start: 20160421
  28. PAXIL [Concomitant]
     Active Substance: PAROXETINE HYDROCHLORIDE
     Indication: DEPRESSION
     Route: 048
     Dates: start: 20170220
  29. PONSTEL [Concomitant]
     Active Substance: MEFENAMIC ACID
     Indication: HEADACHE
     Route: 048
     Dates: start: 20180123
  30. LOCOID [Concomitant]
     Active Substance: HYDROCORTISONE BUTYRATE
     Indication: BEHCET^S SYNDROME
     Route: 061
     Dates: start: 20170731, end: 20171017
  31. REMICADE [Suspect]
     Active Substance: INFLIXIMAB
     Indication: BEHCET^S SYNDROME
     Route: 042
     Dates: start: 20160317
  32. PALLADIUM [Suspect]
     Active Substance: PALLADIUM
     Indication: PRODUCT USED FOR UNKNOWN INDICATION
     Route: 065
  33. PREDONINE [Suspect]
     Active Substance: PREDNISOLONE
     Indication: BEHCET^S SYNDROME
     Route: 048
  34. MINOMYCIN [Suspect]
     Active Substance: MINOCYCLINE HYDROCHLORIDE
     Indication: FOLLICULITIS
     Route: 048
     Dates: start: 20171002, end: 20171006
  35. ADOAIR [Concomitant]
     Active Substance: FLUTICASONE PROPIONATE\SALMETEROL XINAFOATE
     Indication: ASTHMA
     Route: 055
     Dates: end: 20170312
  36. WARFARIN K [Concomitant]
     Active Substance: WARFARIN POTASSIUM
     Indication: BEHCET^S SYNDROME
     Route: 048
  37. ALMETA [Concomitant]
     Active Substance: ALCLOMETASONE DIPROPIONATE
     Indication: BEHCET^S SYNDROME
     Route: 061
     Dates: start: 20170929, end: 20171017
  38. REMICADE [Suspect]
     Active Substance: INFLIXIMAB
     Indication: BEHCET^S SYNDROME
     Route: 042
     Dates: start: 20160728
  39. LENDORMIN [Concomitant]
     Active Substance: BROTIZOLAM
     Indication: DEPRESSION
     Route: 048
     Dates: start: 20160421
  40. FERROMIA [Concomitant]
     Active Substance: SODIUM FERROUS CITRATE
     Indication: IRON DEFICIENCY ANAEMIA
     Route: 048
     Dates: start: 20161006, end: 20161226
  41. FERROMIA [Concomitant]
     Active Substance: SODIUM FERROUS CITRATE
     Indication: IRON DEFICIENCY ANAEMIA
     Route: 048
     Dates: start: 20180123, end: 20180206
  42. WARFARIN [Concomitant]
     Active Substance: WARFARIN
     Indication: BEHCET^S SYNDROME
     Route: 048
     Dates: start: 20170227, end: 20170813
  43. WARFARIN [Concomitant]
     Active Substance: WARFARIN
     Indication: BEHCET^S SYNDROME
     Route: 048
     Dates: start: 20170814, end: 20170831

REACTIONS (10)
  - Prurigo [Recovering/Resolving]
  - Malaise [Not Recovered/Not Resolved]
  - Cough [Recovering/Resolving]
  - Erythema [Recovering/Resolving]
  - Rash [Recovering/Resolving]
  - Stomatitis [Unknown]
  - Eyelid oedema [Unknown]
  - Tinea infection [Recovering/Resolving]
  - Skin candida [Recovering/Resolving]
  - Folliculitis [Not Recovered/Not Resolved]

NARRATIVE: CASE EVENT DATE: 201604
